FAERS Safety Report 4500272-9 (Version None)
Quarter: 2004Q4

REPORT INFORMATION
  Report Type: 
  Country: None (occurrence: None)
  Receive Date: 20041112
  Receipt Date: 20041105
  Transmission Date: 20050328
  Serious: Yes (Hospitalization)
  Sender: FDA-Public Use
  Company Number: JP-MERCK-0411USA01552

PATIENT
  Age: 32 Year
  Sex: Male

DRUGS (6)
  1. PEPCID [Suspect]
     Indication: ABDOMINAL DISCOMFORT
     Route: 048
  2. MESALAMINE [Suspect]
     Indication: CROHN'S DISEASE
     Route: 065
  3. LOXOPROFEN [Suspect]
     Indication: PYREXIA
     Route: 065
  4. LOXOPROFEN [Suspect]
     Indication: MYALGIA
     Route: 065
  5. REBAMIPIDE [Suspect]
     Indication: PYREXIA
     Route: 065
  6. REBAMIPIDE [Suspect]
     Indication: MYALGIA
     Route: 065

REACTIONS (3)
  - ANAEMIA [None]
  - MYOSITIS [None]
  - RHABDOMYOLYSIS [None]
